FAERS Safety Report 4468275-0 (Version None)
Quarter: 2004Q4

REPORT INFORMATION
  Report Type: 
  Country: None (occurrence: None)
  Receive Date: 20041007
  Receipt Date: 20041004
  Transmission Date: 20050328
  Serious: Yes (Hospitalization, Disabling)
  Sender: FDA-Public Use
  Company Number: ES-MERCK-0410ESP00029

PATIENT
  Age: 76 Year
  Sex: Male

DRUGS (2)
  1. INSULIN [Concomitant]
     Indication: DIABETES MELLITUS INSULIN-DEPENDENT
     Route: 065
  2. ROFECOXIB [Suspect]
     Indication: LOCALISED OSTEOARTHRITIS
     Route: 065
     Dates: start: 20020101, end: 20040901

REACTIONS (1)
  - CEREBRAL INFARCTION [None]
